FAERS Safety Report 24030173 (Version 1)
Quarter: 2024Q2

REPORT INFORMATION
  Report Type: Spontaneous
  Country: US (occurrence: US)
  Receive Date: 20240628
  Receipt Date: 20240628
  Transmission Date: 20240715
  Serious: Yes (Other)
  Sender: FDA-Public Use
  Company Number: US-APOTEX-2024AP007698

PATIENT
  Age: 50 Year
  Sex: Male

DRUGS (4)
  1. LITHIUM [Suspect]
     Active Substance: LITHIUM
     Indication: Product used for unknown indication
     Dosage: UNK
     Route: 065
  2. LEVOTHYROXINE [Concomitant]
     Active Substance: LEVOTHYROXINE\LEVOTHYROXINE SODIUM
     Indication: Product used for unknown indication
     Dosage: UNK
     Route: 065
  3. LISINOPRIL [Concomitant]
     Active Substance: LISINOPRIL
     Indication: Product used for unknown indication
     Dosage: UNK
     Route: 065
  4. FUROSEMIDE [Concomitant]
     Active Substance: FUROSEMIDE
     Indication: Product used for unknown indication
     Dosage: UNK
     Route: 065

REACTIONS (12)
  - Cardiotoxicity [Recovered/Resolved]
  - Sinus node dysfunction [Recovered/Resolved]
  - Nephropathy toxic [Recovered/Resolved]
  - Asthenia [Unknown]
  - Bradycardia [Recovered/Resolved]
  - Proteinuria [Unknown]
  - Bradyarrhythmia [Recovered/Resolved]
  - Antipsychotic drug level increased [Recovered/Resolved]
  - Nausea [Unknown]
  - Tremor [Unknown]
  - Hypotension [Recovering/Resolving]
  - Somnolence [Unknown]
